FAERS Safety Report 5394668-3 (Version None)
Quarter: 2007Q3

REPORT INFORMATION
  Report Type: 
  Country: None (occurrence: None)
  Receive Date: 20070723
  Receipt Date: 20070711
  Transmission Date: 20080115
  Serious: Yes (Death, Hospitalization)
  Sender: FDA-Public Use
  Company Number: FR-PFIZER INC-2005152013

PATIENT
  Sex: Male
  Weight: 59 kg

DRUGS (3)
  1. SU-011,248 [Suspect]
     Indication: RENAL CELL CARCINOMA STAGE UNSPECIFIED
     Route: 048
     Dates: start: 20051020, end: 20051123
  2. SU-011,248 [Suspect]
     Route: 048
     Dates: start: 20051116, end: 20051123
  3. OMEPRAZOLE [Concomitant]
     Dosage: FREQ:UNKNOWN
     Route: 048

REACTIONS (5)
  - ANAEMIA [None]
  - DIARRHOEA [None]
  - DISEASE PROGRESSION [None]
  - GENERAL PHYSICAL HEALTH DETERIORATION [None]
  - RENAL CELL CARCINOMA STAGE UNSPECIFIED [None]
